FAERS Safety Report 8388123-6 (Version None)
Quarter: 2012Q2

REPORT INFORMATION
  Report Type: 
  Country: None (occurrence: None)
  Receive Date: 20120525
  Receipt Date: 20120521
  Transmission Date: 20120825
  Serious: Yes (Other)
  Sender: FDA-Public Use
  Company Number: US-TEVA-338040USA

PATIENT
  Age: 60 Year
  Sex: Female

DRUGS (9)
  1. COPAXONE [Suspect]
     Indication: MULTIPLE SCLEROSIS
     Route: 058
     Dates: start: 20120101
  2. PREMARIN [Concomitant]
  3. CLONIDINE [Concomitant]
  4. POTASSIUM CHLORIDE [Concomitant]
  5. VALIUM [Concomitant]
  6. OXYCODONE HCL [Concomitant]
     Indication: ANALGESIC THERAPY
  7. LASIX [Concomitant]
  8. LISINOPRIL [Concomitant]
  9. TIZANIDINE HYDROCHLORIDE [Concomitant]

REACTIONS (1)
  - ANAPHYLACTIC SHOCK [None]
